FAERS Safety Report 6150038-1 (Version None)
Quarter: 2009Q2

REPORT INFORMATION
  Report Type: 
  Country: None (occurrence: None)
  Receive Date: 20090409
  Receipt Date: 20090406
  Transmission Date: 20091009
  Serious: Yes (Hospitalization)
  Sender: FDA-Public Use
  Company Number: D0061209A

PATIENT
  Age: 63 Year
  Sex: Female

DRUGS (5)
  1. LAMICTAL [Suspect]
     Indication: EPILEPSY
     Dosage: 200MG PER DAY
     Route: 048
  2. CYMBALTA [Suspect]
     Dosage: 60MG PER DAY
     Route: 065
     Dates: start: 20061024, end: 20061107
  3. NEXIUM [Suspect]
     Dosage: 20MG PER DAY
     Route: 048
     Dates: start: 20061009, end: 20061108
  4. MUSARIL [Concomitant]
     Dosage: 25MG PER DAY
     Route: 048
     Dates: start: 20061020, end: 20061116
  5. PRESOMEN [Concomitant]
     Dosage: .3MG PER DAY
     Route: 065
     Dates: start: 20061009, end: 20061122

REACTIONS (2)
  - DRUG INTERACTION [None]
  - LEUKOPENIA [None]
